FAERS Safety Report 14094815 (Version 7)
Quarter: 2018Q3

REPORT INFORMATION
  Report Type: Spontaneous
  Country: US (occurrence: US)
  Receive Date: 20171016
  Receipt Date: 20180703
  Transmission Date: 20181010
  Serious: Yes (Disabling, Other)
  Sender: FDA-Public Use
  Company Number: US-ALLERGAN-1758489US

PATIENT
  Age: 72 Year
  Sex: Female

DRUGS (12)
  1. BENAZEPRIL [Concomitant]
     Active Substance: BENAZEPRIL HYDROCHLORIDE
     Indication: HYPERTENSION
     Dosage: 4 DF, QD
  2. OXYBUTYNIN. [Concomitant]
     Active Substance: OXYBUTYNIN CHLORIDE
     Indication: MICTURITION URGENCY
  3. AMLODIPINE [Concomitant]
     Active Substance: AMLODIPINE BESYLATE
     Indication: HYPERTENSION
     Route: 065
  4. DORZOLAMIDE [Concomitant]
     Active Substance: DORZOLAMIDE
  5. PRIMIDONE. [Concomitant]
     Active Substance: PRIMIDONE
     Route: 065
  6. INSULINE [Concomitant]
     Active Substance: INSULIN NOS
     Indication: DIABETES MELLITUS
  7. CORTISONE [Suspect]
     Active Substance: CORTISONE\HYDROCORTISONE
     Indication: NECK INJURY
  8. METFORMIN [Concomitant]
     Active Substance: METFORMIN HYDROCHLORIDE
     Indication: DIABETES MELLITUS
  9. LUMIGAN [Suspect]
     Active Substance: BIMATOPROST
     Indication: GLAUCOMA
     Dosage: 2 GTT, QPM
     Route: 047
  10. CORTISONE [Suspect]
     Active Substance: CORTISONE\HYDROCORTISONE
     Indication: BACK INJURY
     Dosage: UNK
  11. LUMIGAN [Suspect]
     Active Substance: BIMATOPROST
     Indication: INTRAOCULAR PRESSURE INCREASED
     Dosage: 2 GTT, QPM
     Route: 047
     Dates: start: 2010
  12. LOVASTATIN. [Concomitant]
     Active Substance: LOVASTATIN
     Indication: BLOOD CHOLESTEROL INCREASED

REACTIONS (21)
  - Intervertebral disc protrusion [Unknown]
  - Blood pressure systolic increased [Unknown]
  - Blood glucose abnormal [Recovering/Resolving]
  - Migraine [Unknown]
  - Back pain [Not Recovered/Not Resolved]
  - Muscle spasms [Unknown]
  - Pain [Not Recovered/Not Resolved]
  - Road traffic accident [Unknown]
  - Blood calcium increased [Unknown]
  - Road traffic accident [Unknown]
  - Visual impairment [Not Recovered/Not Resolved]
  - Malaise [Unknown]
  - Drug dose omission [Unknown]
  - Disability [Not Recovered/Not Resolved]
  - Road traffic accident [Not Recovered/Not Resolved]
  - Lacrimal disorder [Unknown]
  - Injury [Unknown]
  - Blindness [Not Recovered/Not Resolved]
  - Visual field defect [Unknown]
  - Intraocular pressure increased [Recovering/Resolving]
  - Neck pain [Not Recovered/Not Resolved]

NARRATIVE: CASE EVENT DATE: 201610
